FAERS Safety Report 4535863-2 (Version None)
Quarter: 2004Q4

REPORT INFORMATION
  Report Type: 
  Country: None (occurrence: None)
  Receive Date: 20041223
  Receipt Date: 20041020
  Transmission Date: 20050328
  Serious: Yes (Other)
  Sender: FDA-Public Use
  Company Number: PHHO2004ES14787

PATIENT
  Age: 64 Year
  Sex: Female
  Weight: 68 kg

DRUGS (6)
  1. XENICAL [Concomitant]
  2. OSTINE [Concomitant]
  3. CALCIUM ^SANDOZ^ [Concomitant]
  4. VITAMIN D [Concomitant]
  5. ZOLEDRONATE VS RISEDRONATE [Suspect]
     Dosage: UNK, UNK
     Dates: start: 20040124
  6. IBUPROFEN [Concomitant]
     Indication: PAIN
     Dosage: 600 MG, UNK
     Dates: start: 20020909

REACTIONS (2)
  - ARTHRALGIA [None]
  - ASEPTIC NECROSIS BONE [None]
